FAERS Safety Report 24120978 (Version 3)
Quarter: 2024Q4

REPORT INFORMATION
  Report Type: Spontaneous
  Country: US (occurrence: US)
  Receive Date: 20240722
  Receipt Date: 20241211
  Transmission Date: 20250115
  Serious: No
  Sender: PFIZER
  Company Number: US-PFIZER INC-202400218744

PATIENT
  Age: 89 Year
  Sex: Female

DRUGS (2)
  1. EUCRISA [Suspect]
     Active Substance: CRISABOROLE
     Indication: Dermatitis atopic
     Dosage: UNK
     Route: 061
  2. EUCRISA [Suspect]
     Active Substance: CRISABOROLE
     Indication: Erythema
     Dosage: UNK, 2X/DAY (APPLY TWICE A DAY TO LEGS)
     Route: 061

REACTIONS (4)
  - Hypertension [Unknown]
  - Hypersensitivity [Unknown]
  - Rash macular [Unknown]
  - Erythema [Unknown]
